FAERS Safety Report 26092280 (Version 1)
Quarter: 2025Q4

REPORT INFORMATION
  Report Type: Spontaneous
  Country: US (occurrence: None)
  Receive Date: 20251125
  Receipt Date: 20251125
  Transmission Date: 20260117
  Serious: No
  Sender: FDA-CTU
  Company Number: None

PATIENT
  Age: 64 Year
  Sex: Female
  Weight: 67.05 kg

DRUGS (24)
  1. PREGABALIN [Suspect]
     Active Substance: PREGABALIN
     Indication: Neuropathy peripheral
     Dosage: OTHER QUANTITY : 60 CAPSULE(S);?FREQUENCY : TWICE A DAY;?
     Route: 048
     Dates: start: 20251113, end: 20251125
  2. GABAPENTIN [Suspect]
     Active Substance: GABAPENTIN
  3. KLONOPIN [Concomitant]
     Active Substance: CLONAZEPAM
  4. SUCRALFATE [Concomitant]
     Active Substance: SUCRALFATE
  5. PEPCID [Concomitant]
     Active Substance: FAMOTIDINE
  6. LAMICTAL [Concomitant]
     Active Substance: LAMOTRIGINE
  7. TOPAMAX [Concomitant]
     Active Substance: TOPIRAMATE
  8. DEXEDRINE [Concomitant]
     Active Substance: DEXTROAMPHETAMINE SULFATE
  9. LEVOTHYROXINE [Concomitant]
     Active Substance: LEVOTHYROXINE
  10. lorssrtan-potassium [Concomitant]
  11. LABETALOL [Concomitant]
     Active Substance: LABETALOL
  12. LUVOX [Concomitant]
     Active Substance: FLUVOXAMINE MALEATE
  13. CLONIDINE [Concomitant]
     Active Substance: CLONIDINE
  14. SPIRONOLACTONE [Concomitant]
     Active Substance: SPIRONOLACTONE
  15. REPATHA [Concomitant]
     Active Substance: EVOLOCUMAB
  16. FENOFIBRATE [Concomitant]
     Active Substance: FENOFIBRATE
  17. PRILOSEC [Concomitant]
     Active Substance: OMEPRAZOLE MAGNESIUM
  18. ZOFRAN [Concomitant]
     Active Substance: ONDANSETRON HYDROCHLORIDE
  19. ALBUTEROL SULFATE [Concomitant]
     Active Substance: ALBUTEROL SULFATE
  20. GABAPENTIN [Concomitant]
     Active Substance: GABAPENTIN
  21. vitamins e [Concomitant]
  22. VITAMIN D3 [Concomitant]
     Active Substance: CHOLECALCIFEROL
  23. BIOTIN [Concomitant]
     Active Substance: BIOTIN
  24. MAGNESIUM GLYCINATE [Concomitant]
     Active Substance: MAGNESIUM GLYCINATE

REACTIONS (1)
  - Nightmare [None]

NARRATIVE: CASE EVENT DATE: 20251125
